FAERS Safety Report 4717198-8 (Version None)
Quarter: 2005Q3

REPORT INFORMATION
  Report Type: 
  Country: None (occurrence: None)
  Receive Date: 20050712
  Receipt Date: 20050224
  Transmission Date: 20060218
  Serious: Yes (Other)
  Sender: FDA-Public Use
  Company Number: 2005024870

PATIENT
  Sex: Female
  Weight: 52.1637 kg

DRUGS (6)
  1. ACCUPRIL [Suspect]
     Indication: HYPERTENSION
     Dosage: 40 MG (20 MG, 2 IN 1 D) ORAL
     Route: 048
     Dates: start: 19980101, end: 20050201
  2. ALENDRONATE SODIUM [Suspect]
     Indication: BONE DENSITY DECREASED
     Dosage: 1 IN 1 D, ORAL
     Route: 048
  3. SODIUM FLUOROPHOSPHATE [Suspect]
     Indication: ILL-DEFINED DISORDER
     Dates: start: 20050101, end: 20050101
  4. HYDROCHLOROTHIAZIDE [Concomitant]
  5. ATORVASTATIN CALCIUM [Concomitant]
  6. SORBITOL [Suspect]
     Indication: ILL-DEFINED DISORDER

REACTIONS (4)
  - BLOOD CHOLESTEROL INCREASED [None]
  - BONE DENSITY DECREASED [None]
  - HYPERSENSITIVITY [None]
  - SWOLLEN TONGUE [None]
